FAERS Safety Report 9856230 (Version 1)
Quarter: 2014Q1

REPORT INFORMATION
  Report Type: Spontaneous
  Country: US (occurrence: US)
  Receive Date: 20140130
  Receipt Date: 20140130
  Transmission Date: 20141002
  Serious: Yes (Disabling)
  Sender: FDA-Public Use
  Company Number: US-AMGEN-USASP2014005282

PATIENT
  Age: 43 Year
  Sex: Female

DRUGS (1)
  1. SENSIPAR [Suspect]
     Indication: HYPERPARATHYROIDISM SECONDARY
     Dosage: 30 MG, QD
     Route: 048
     Dates: start: 20131104

REACTIONS (4)
  - Migraine [Recovered/Resolved]
  - Vision blurred [Recovered/Resolved]
  - Photopsia [Recovered/Resolved]
  - Blood parathyroid hormone increased [Unknown]
